FAERS Safety Report 18456724 (Version 1)
Quarter: 2020Q4

REPORT INFORMATION
  Report Type: Spontaneous
  Country: GB (occurrence: GB)
  Receive Date: 20201103
  Receipt Date: 20201103
  Transmission Date: 20210114
  Serious: Yes (Hospitalization)
  Sender: FDA-Public Use
  Company Number: GB-BEH-2020124127

PATIENT
  Age: 33 Year
  Sex: Female
  Weight: 53.07 kg

DRUGS (4)
  1. RHOPHYLAC [Suspect]
     Active Substance: HUMAN RHO(D) IMMUNE GLOBULIN
     Indication: PRODUCT USED FOR UNKNOWN INDICATION
     Dosage: 1500 INTERNATIONAL UNIT
     Route: 051
     Dates: start: 20191002
  2. RHOPHYLAC [Suspect]
     Active Substance: HUMAN RHO(D) IMMUNE GLOBULIN
     Dosage: 1500 INTERNATIONAL UNIT
     Route: 064
     Dates: start: 20191002
  3. RHOPHYLAC [Suspect]
     Active Substance: HUMAN RHO(D) IMMUNE GLOBULIN
     Indication: PRODUCT USED FOR UNKNOWN INDICATION
     Dosage: 1500 INTERNATIONAL UNIT
     Route: 051
     Dates: start: 20191002
  4. RHOPHYLAC [Suspect]
     Active Substance: HUMAN RHO(D) IMMUNE GLOBULIN
     Dosage: 1500 INTERNATIONAL UNIT
     Route: 064
     Dates: start: 20191002

REACTIONS (2)
  - Foetal exposure during pregnancy [Unknown]
  - Foetal hypokinesia [Unknown]
